FAERS Safety Report 8907188 (Version 1)
Quarter: 2012Q4

REPORT INFORMATION
  Report Type: 
  Country: US (occurrence: US)
  Receive Date: 20121113
  Receipt Date: 20121113
  Transmission Date: 20130627
  Serious: No
  Sender: FDA-Public Use
  Company Number: US-AMGEN-USASP2012010552

PATIENT
  Age: 47 Year
  Sex: Female
  Weight: 54.88 kg

DRUGS (6)
  1. ENBREL [Suspect]
     Indication: RHEUMATOID ARTHRITIS
     Dosage: 50 mg, qwk
     Route: 058
  2. ARTHROTEC [Concomitant]
     Dosage: UNK
  3. INDERAL [Concomitant]
     Dosage: 10 mg, UNK
  4. METHOTREXATE [Concomitant]
     Dosage: 2.5 mg, UNK
  5. PREVACID [Concomitant]
     Dosage: 15 mg, UNK
  6. FOLIC ACID [Concomitant]
     Dosage: UNK

REACTIONS (3)
  - Alopecia [Unknown]
  - Influenza [Unknown]
  - Tooth infection [Unknown]
